FAERS Safety Report 7001071-9 (Version None)
Quarter: 2010Q3

REPORT INFORMATION
  Report Type: 
  Country: None (occurrence: None)
  Receive Date: 20100920
  Receipt Date: 20100914
  Transmission Date: 20110219
  Serious: Yes (Other)
  Sender: FDA-Public Use
  Company Number: IE-ROCHE-618902

PATIENT
  Sex: Female
  Weight: 60 kg

DRUGS (5)
  1. BONIVA [Suspect]
     Indication: OSTEOPOROSIS
     Route: 048
     Dates: start: 20081107, end: 20081108
  2. COPAXONE [Concomitant]
     Indication: MULTIPLE SCLEROSIS
     Dosage: FREQUENCY REPORTED AS DAILY.
     Route: 048
     Dates: start: 20051125
  3. PRILOSEC [Concomitant]
     Indication: DYSPEPSIA
     Dosage: FREQUENCY REPORTED AS DAILY.
     Route: 048
     Dates: start: 20051206
  4. CELECTOL [Concomitant]
     Indication: HYPERTENSION
     Dosage: FREQUENCY REPORTED AS DAILY.
     Route: 048
     Dates: start: 19971104
  5. FERREUX GLUCONATE [Concomitant]
     Indication: ANAEMIA
     Dosage: FREQUENCY : DAILY
     Route: 048
     Dates: start: 20050101

REACTIONS (2)
  - GUTTATE PSORIASIS [None]
  - PSORIASIS [None]
